FAERS Safety Report 8617202 (Version 2)
Quarter: 2014Q1

REPORT INFORMATION
  Report Type: Spontaneous
  Country: US (occurrence: None)
  Receive Date: 20120323
  Receipt Date: 20130305
  Transmission Date: 20141002
  Serious: Yes (Hospitalization, Other)
  Sender: FDA-Public Use
  Company Number: 163-21880-11121252

PATIENT
  Age: 53 Year
  Sex: Male

DRUGS (8)
  1. REVLIMID [Suspect]
     Indication: MYELODYSPLASTIC SYNDROME
     Dosage: 5 MG, 3 X A WEEK AFTER HEMODIALYSIS, PO
     Route: 048
     Dates: start: 20111115, end: 20111127
  2. TRAZODONE HYDROCHLORIDE [Concomitant]
  3. LEVOTHYROXINE SODIUM [Concomitant]
  4. LABETALOL HCL [Concomitant]
  5. AMLODIPINE [Concomitant]
  6. HYDRALAZINE (HYDRALAZINE) [Concomitant]
  7. ASA (ACETYLSALICYLIC ACID) [Concomitant]
  8. LANTUS [Concomitant]

REACTIONS (7)
  - Thrombosis [None]
  - Haemoglobin decreased [None]
  - Diarrhoea [None]
  - Asthenia [None]
  - White blood cell count decreased [None]
  - Muscle spasms [None]
  - Paraesthesia [None]
